FAERS Safety Report 25806892 (Version 1)
Quarter: 2025Q3

REPORT INFORMATION
  Report Type: Spontaneous
  Country: US (occurrence: US)
  Receive Date: 20250916
  Receipt Date: 20250916
  Transmission Date: 20251020
  Serious: No
  Sender: BRAEBURN PHARMACEUTICALS
  Company Number: US-BRAEBURN PHARMACEUTICALS-US-BRA-25-000501

PATIENT
  Sex: Male
  Weight: 156.46 kg

DRUGS (1)
  1. BRIXADI [Suspect]
     Active Substance: BUPRENORPHINE
     Indication: Drug dependence
     Route: 058

REACTIONS (1)
  - Drug ineffective [Unknown]
